FAERS Safety Report 15606546 (Version 1)
Quarter: 2018Q4

REPORT INFORMATION
  Report Type: Spontaneous
  Country: US (occurrence: US)
  Receive Date: 20181112
  Receipt Date: 20181112
  Transmission Date: 20190205
  Serious: No
  Sender: FDA-Public Use
  Company Number: US-IPSEN BIOPHARMACEUTICALS, INC.-2018-16761

PATIENT
  Sex: Female

DRUGS (3)
  1. DYSPORT [Suspect]
     Active Substance: ABOBOTULINUMTOXINA
     Indication: SKIN WRINKLING
  2. DYSPORT [Suspect]
     Active Substance: ABOBOTULINUMTOXINA
     Indication: SKIN WRINKLING
     Dosage: 60 UNITS (GLABELLA, FOREHEAD)
     Route: 065
     Dates: start: 20181029, end: 20181029
  3. DYSPORT [Suspect]
     Active Substance: ABOBOTULINUMTOXINA
     Indication: OFF LABEL USE

REACTIONS (5)
  - Intentional product use issue [Unknown]
  - Injection site erythema [Unknown]
  - Intentional product misuse [Unknown]
  - Injection site warmth [Unknown]
  - Injection site nodule [Unknown]

NARRATIVE: CASE EVENT DATE: 20181030
